FAERS Safety Report 9671814 (Version 2)
Quarter: 2013Q4

REPORT INFORMATION
  Report Type: Spontaneous
  Country: JP (occurrence: JP)
  Receive Date: 20131106
  Receipt Date: 20131203
  Transmission Date: 20140711
  Serious: Yes (Other)
  Sender: FDA-Public Use
  Company Number: JP-JNJFOC-20131101734

PATIENT
  Age: 81 Year
  Sex: Female
  Weight: 45 kg

DRUGS (5)
  1. XARELTO [Suspect]
     Indication: THROMBOSIS PROPHYLAXIS
     Route: 048
     Dates: start: 20130809, end: 20131011
  2. LOSARTAN POTASSIUM [Concomitant]
     Indication: HYPERTENSION
     Route: 048
     Dates: start: 20130620
  3. CRESTOR [Concomitant]
     Indication: HYPERCHOLESTEROLAEMIA
     Route: 048
     Dates: start: 20101205
  4. AMLODIPINE BESILATE [Concomitant]
     Indication: HYPERTENSION
     Route: 048
     Dates: start: 20060525
  5. LOXOPROFEN SODIUM [Concomitant]
     Indication: BACK PAIN
     Route: 062
     Dates: start: 20110929

REACTIONS (3)
  - Melaena [Recovered/Resolved]
  - Compression fracture [Unknown]
  - Haematuria [Unknown]
